FAERS Safety Report 13020235 (Version 1)
Quarter: 2016Q4

REPORT INFORMATION
  Report Type: Spontaneous
  Country: ES (occurrence: ES)
  Receive Date: 20161212
  Receipt Date: 20161212
  Transmission Date: 20170207
  Serious: Yes (Other)
  Sender: FDA-Public Use
  Company Number: ES-TEVA-708018ISR

PATIENT
  Age: 39 Year
  Sex: Male

DRUGS (7)
  1. IRINOTECAN [Suspect]
     Active Substance: IRINOTECAN
     Indication: RECTAL CANCER METASTATIC
     Dosage: 180 MG/M2 ON DAY 1 IN A 14-DAY CYCLE
     Route: 065
  2. OXALIPLATIN. [Suspect]
     Active Substance: OXALIPLATIN
     Indication: COLORECTAL CANCER METASTATIC
     Dosage: 85 MG/M2 ON DAY 01: 14 DAY CYCLE
     Dates: start: 2011
  3. 5-FLUOROURACIL [Concomitant]
     Active Substance: FLUOROURACIL
     Indication: RECTAL CANCER METASTATIC
     Dosage: BOLUS 400 MG/M2 ON DAY 1; 14 DAY CYCLE
     Dates: start: 2011
  4. AFLIBERCEPT [Suspect]
     Active Substance: AFLIBERCEPT
     Indication: RECTAL CANCER METASTATIC
     Dosage: 4MG/KG ON DAY 1 IN A 14-DAY CYCLE
  5. 5-FLUOROURACIL [Concomitant]
     Active Substance: FLUOROURACIL
     Dosage: CONTINUOUS INFUSION 2,400 MG/M2 ON DAY 1; 14 DAY CYCLE
     Dates: start: 2011
  6. LEUCOVORIN. [Concomitant]
     Active Substance: LEUCOVORIN
     Dosage: 200 MG/M2 ON DAY 1; 14 DAY CYCLE
     Dates: start: 2011
  7. BEVACIZUMAB [Concomitant]
     Active Substance: BEVACIZUMAB
     Dosage: 5 MG/KG ON DAY 1; 14 DAY CYCLE
     Dates: start: 2011

REACTIONS (5)
  - Alopecia [Unknown]
  - Hypertension [Unknown]
  - Diarrhoea [Unknown]
  - Neurotoxicity [Unknown]
  - Proteinuria [Unknown]
